FAERS Safety Report 12507845 (Version 2)
Quarter: 2016Q3

REPORT INFORMATION
  Report Type: Spontaneous
  Country: None (occurrence: DE)
  Receive Date: 20160629
  Receipt Date: 20160705
  Transmission Date: 20161109
  Serious: Yes (Hospitalization, Other)
  Sender: FDA-Public Use
  Company Number: DE-MERCK KGAA-1054388

PATIENT

DRUGS (1)
  1. NOVOTHYROX [Suspect]
     Active Substance: LEVOTHYROXINE SODIUM

REACTIONS (6)
  - Abasia [None]
  - Thyroid function test abnormal [None]
  - Drug dispensing error [None]
  - Intervertebral disc protrusion [None]
  - Nerve compression [None]
  - Wrong drug administered [None]
